FAERS Safety Report 5077030-2 (Version None)
Quarter: 2006Q3

REPORT INFORMATION
  Report Type: 
  Country: None (occurrence: None)
  Receive Date: 20060801
  Receipt Date: 20060720
  Transmission Date: 20061208
  Serious: Yes (Other)
  Sender: FDA-Public Use
  Company Number: NLWYE380227JUL06

PATIENT

DRUGS (1)
  1. REFACTO [Suspect]

REACTIONS (2)
  - FACTOR VIII INHIBITION [None]
  - POST PROCEDURAL COMPLICATION [None]
